FAERS Safety Report 6808464-0 (Version None)
Quarter: 2010Q2

REPORT INFORMATION
  Report Type: 
  Country: None (occurrence: None)
  Receive Date: 20100629
  Receipt Date: 20090612
  Transmission Date: 20101027
  Serious: No
  Sender: FDA-Public Use
  Company Number: US-PFIZER INC-2009227367

PATIENT
  Sex: Male
  Weight: 49.9 kg

DRUGS (9)
  1. TIKOSYN [Suspect]
     Indication: WOLFF-PARKINSON-WHITE SYNDROME
     Dosage: 250 UG, 2X/DAY
     Dates: start: 20090101
  2. POTASSIUM [Concomitant]
     Dosage: UNK
  3. MAGNESIUM [Concomitant]
     Dosage: UNK
  4. PREDNISONE [Concomitant]
     Dosage: UNK
  5. COSOPT [Concomitant]
     Dosage: UNK
     Route: 047
  6. BRIMONIDINE [Concomitant]
     Dosage: UNK
     Route: 047
  7. PRED FORTE [Concomitant]
     Dosage: UNK
     Route: 047
  8. XANAX [Concomitant]
     Dosage: UNK
  9. DARVOCET [Concomitant]
     Dosage: UNK

REACTIONS (1)
  - OEDEMA [None]
